FAERS Safety Report 7888477-0 (Version None)
Quarter: 2011Q4

REPORT INFORMATION
  Report Type: 
  Country: None (occurrence: None)
  Receive Date: 20111103
  Receipt Date: 20111028
  Transmission Date: 20120403
  Serious: Yes (Hospitalization, Other)
  Sender: FDA-Public Use
  Company Number: PHEH2007US07738

PATIENT
  Sex: Female

DRUGS (47)
  1. TYLENOL-500 [Concomitant]
  2. KEFZOL [Concomitant]
     Dosage: 1 G, UNK
  3. COLACE [Concomitant]
     Dosage: 100 MG, BID
  4. LEUKINE [Concomitant]
     Dosage: 500 MCG, UNK
     Dates: start: 20070705, end: 20070711
  5. ACTONEL [Suspect]
  6. VERSED [Concomitant]
     Dosage: 2 MG,
     Dates: start: 20061211, end: 20061211
  7. SUBLIMAZE PRESERVATIVE FREE [Concomitant]
     Dosage: 1 MG, UNK
     Dates: start: 20070205, end: 20070205
  8. LIDOCAINE [Concomitant]
     Dosage: 5.4 ML 2%
     Dates: start: 20070205, end: 20070205
  9. PERIDEX [Concomitant]
  10. ALEVE [Concomitant]
  11. DURAGESIC-100 [Concomitant]
  12. ZOMETA [Suspect]
     Indication: HYPERCALCAEMIA OF MALIGNANCY
     Dosage: 4 MG MONTLY
     Dates: start: 20031125, end: 20070323
  13. TAXOL [Concomitant]
     Indication: NON-SMALL CELL LUNG CANCER
     Dates: start: 20051001
  14. NAVELBINE [Concomitant]
     Indication: NON-SMALL CELL LUNG CANCER
     Dates: start: 20030801, end: 20040901
  15. PROMETHAZINE [Concomitant]
     Dosage: 12.5 MG,
     Route: 042
     Dates: start: 20061211, end: 20061211
  16. FLAGYL [Concomitant]
     Dosage: 500 MG, BID
     Route: 048
  17. NARCAN [Concomitant]
  18. UNASYN [Concomitant]
  19. KLONOPIN [Concomitant]
  20. CARBOPLATIN [Concomitant]
     Indication: NON-SMALL CELL LUNG CANCER
     Dates: start: 20030801, end: 20040901
  21. TARCEVA [Concomitant]
     Indication: NON-SMALL CELL LUNG CANCER
     Dates: start: 20050901
  22. CISPLATIN [Concomitant]
     Indication: NON-SMALL CELL LUNG CANCER
     Dates: start: 20060501, end: 20061101
  23. ONDANSETRON [Concomitant]
     Dosage: 4 MG, Q6H, PRN
  24. CARBIDOPA + LEVODOPA [Concomitant]
     Dosage: 25/100 ONE TABLET EVERY BEDTIME
  25. ROMAZICON [Concomitant]
  26. AVASTIN [Concomitant]
     Indication: NON-SMALL CELL LUNG CANCER
     Dates: start: 20030801, end: 20040901
  27. MIDAZOLAM [Concomitant]
  28. COMPAZINE [Concomitant]
  29. DECADRON [Concomitant]
  30. TAXOTERE [Concomitant]
     Indication: NON-SMALL CELL LUNG CANCER
     Dates: start: 20050801, end: 20050901
  31. VERSED [Concomitant]
     Dosage: 2 MG, UNK
     Dates: start: 20070205, end: 20070205
  32. PROPOFOL [Concomitant]
     Dosage: 50 MG,
     Dates: start: 20061211, end: 20061211
  33. LORTAB [Concomitant]
  34. SUBLIMAZE PRESERVATIVE FREE [Concomitant]
     Dosage: 1 ML,
     Dates: start: 20061211, end: 20061211
  35. LIDOCAINE [Concomitant]
     Dosage: 5.4 ML 2%
     Dates: start: 20061211, end: 20061211
  36. PREVACID [Concomitant]
     Dosage: 30 MG, DAILY
     Route: 048
  37. HEPARIN [Concomitant]
  38. MORPHINE [Concomitant]
  39. RESTORIL [Concomitant]
     Dosage: 12.5 MG, Q6H, PRN
  40. LOVENOX [Concomitant]
     Dosage: 30 MG, Q24H
  41. NEUPOGEN [Concomitant]
     Dosage: 300 MCG
     Dates: start: 20070703, end: 20070717
  42. CARAFATE [Concomitant]
     Dosage: 1 MG, TID
  43. PROPOFOL [Concomitant]
     Dosage: 50 MG, UNK
     Dates: start: 20070205, end: 20070205
  44. PROMETHAZINE [Concomitant]
     Dosage: 12.5 MG, UNK
     Route: 042
     Dates: start: 20070205, end: 20070205
  45. EFFEXOR [Concomitant]
     Dosage: 150 MG,DAILY
     Route: 048
  46. CIPRO [Concomitant]
     Dosage: 500 MG, BID
     Route: 048
  47. COUMADIN [Concomitant]

REACTIONS (63)
  - LUNG NEOPLASM MALIGNANT [None]
  - OSTEONECROSIS OF JAW [None]
  - RENAL FAILURE [None]
  - GASTROOESOPHAGEAL REFLUX DISEASE [None]
  - OSTEOMYELITIS CHRONIC [None]
  - RESPIRATORY FAILURE [None]
  - EMPHYSEMA [None]
  - DYSPHAGIA [None]
  - OSTEOPENIA [None]
  - AMNESIA [None]
  - DEPRESSION [None]
  - NASAL CONGESTION [None]
  - HYPOAESTHESIA [None]
  - ARTERIOSCLEROSIS CORONARY ARTERY [None]
  - CHRONIC SINUSITIS [None]
  - DYSTHYMIC DISORDER [None]
  - ERYTHEMA [None]
  - OSTEITIS [None]
  - BONE DISORDER [None]
  - INJURY [None]
  - SKIN ULCER [None]
  - HYPOKALAEMIA [None]
  - OSTEORADIONECROSIS [None]
  - WEIGHT INCREASED [None]
  - HYPOACUSIS [None]
  - URTICARIA [None]
  - SUBARACHNOID HAEMORRHAGE [None]
  - RESTLESS LEGS SYNDROME [None]
  - METASTASES TO MENINGES [None]
  - ANXIETY [None]
  - FALL [None]
  - NECROSIS [None]
  - SINUS TACHYCARDIA [None]
  - ABDOMINAL PAIN [None]
  - MUSCULOSKELETAL PAIN [None]
  - WRIST FRACTURE [None]
  - HYPERGLYCAEMIA [None]
  - DISABILITY [None]
  - HYPERTENSION [None]
  - EPISTAXIS [None]
  - DIZZINESS [None]
  - HYPOMAGNESAEMIA [None]
  - ARTHRITIS [None]
  - APPETITE DISORDER [None]
  - DYSPEPSIA [None]
  - NEOPLASM MALIGNANT [None]
  - SWELLING [None]
  - CONSTIPATION [None]
  - TINNITUS [None]
  - DYSPNOEA EXERTIONAL [None]
  - CHILLS [None]
  - BREATHING-RELATED SLEEP DISORDER [None]
  - MALNUTRITION [None]
  - MAGNESIUM METABOLISM DISORDER [None]
  - ORAL DISORDER [None]
  - PAIN [None]
  - ANHEDONIA [None]
  - BACK PAIN [None]
  - RECTAL HAEMORRHAGE [None]
  - OSTEOMYELITIS [None]
  - PYREXIA [None]
  - INCONTINENCE [None]
  - WEIGHT DECREASED [None]
